FAERS Safety Report 8275253-2 (Version None)
Quarter: 2012Q2

REPORT INFORMATION
  Report Type: 
  Country: None (occurrence: None)
  Receive Date: 20120411
  Receipt Date: 20120402
  Transmission Date: 20120825
  Serious: No
  Sender: FDA-Public Use
  Company Number: US-BAYER-2012-032319

PATIENT
  Age: 66 Year
  Sex: Female
  Weight: 95 kg

DRUGS (10)
  1. ATORVASTATIN [Suspect]
     Indication: BLOOD CHOLESTEROL INCREASED
     Dosage: 10 MG, QD
     Route: 048
     Dates: start: 20120118, end: 20120220
  2. ACETAMINOPHEN [Suspect]
     Dosage: UNK
     Dates: start: 20120101
  3. CARVEDILOL [Concomitant]
     Indication: CARDIAC DISORDER
     Dosage: 5 MG, BID
  4. FUROSEMIDE [Concomitant]
  5. IBUPROFEN [Suspect]
     Indication: PAIN
     Dosage: UNK
     Dates: start: 20120101
  6. HUMALOG [Concomitant]
     Indication: DIABETES MELLITUS
     Dosage: UNK UNK, BID
  7. LIPITOR [Concomitant]
  8. CODEINE [Concomitant]
  9. PLAVIX [Concomitant]
  10. ALEVE (CAPLET) [Suspect]
     Dosage: UNK
     Dates: start: 20120101

REACTIONS (1)
  - NO ADVERSE EVENT [None]
